FAERS Safety Report 9228458 (Version 1)
Quarter: 2013Q1

REPORT INFORMATION
  Report Type: Spontaneous
  Country: US (occurrence: None)
  Receive Date: 20121010
  Receipt Date: 20121010
  Transmission Date: 20140127
  Serious: Yes (Other)
  Sender: FDA-Public Use
  Company Number: 2011SCPR003244

PATIENT
  Age: 30 Year
  Sex: Female

DRUGS (2)
  1. CLOMIPHENE CITRATE [Suspect]
     Indication: OVULATION INDUCTION
     Route: 048
     Dates: start: 20110727, end: 201107
  2. SYNTHROID (LEVOTHYROXINE SODIUM) UNKNOWN [Concomitant]

REACTIONS (1)
  - Vision blurred [None]
